FAERS Safety Report 4334501-1 (Version None)
Quarter: 2004Q2

REPORT INFORMATION
  Report Type: 
  Country: None (occurrence: None)
  Receive Date: 20040407
  Receipt Date: 20040224
  Transmission Date: 20050107
  Serious: Yes (Hospitalization)
  Sender: FDA-Public Use
  Company Number: FR-GLAXOSMITHKLINE-B0324456A

PATIENT
  Age: 51 Year
  Sex: Male
  Weight: 82.6 kg

DRUGS (3)
  1. MALARONE [Suspect]
     Indication: MALARIA
     Dosage: 4UNIT PER DAY
     Route: 048
     Dates: start: 20040119
  2. MALARONE [Suspect]
     Indication: MALARIA PROPHYLAXIS
     Dosage: 1UNIT PER DAY
     Route: 048
     Dates: start: 20031122, end: 20031213
  3. INSECT REPELLENT [Concomitant]

REACTIONS (12)
  - ALANINE AMINOTRANSFERASE INCREASED [None]
  - ASPARTATE AMINOTRANSFERASE INCREASED [None]
  - ATRIAL FIBRILLATION [None]
  - DRUG INEFFECTIVE [None]
  - FIBRIN D DIMER INCREASED [None]
  - HEART SOUNDS ABNORMAL [None]
  - MALARIA [None]
  - PAIN [None]
  - PALPITATIONS [None]
  - PLASMODIUM FALCIPARUM INFECTION [None]
  - TACHYCARDIA [None]
  - THROMBOCYTOPENIA [None]
